FAERS Safety Report 7770889-7 (Version None)
Quarter: 2011Q3

REPORT INFORMATION
  Report Type: 
  Country: None (occurrence: None)
  Receive Date: 20110922
  Receipt Date: 20110413
  Transmission Date: 20111222
  Serious: Yes (Other)
  Sender: FDA-Public Use
  Company Number: US-ASTRAZENECA-2009UW13713

PATIENT
  Age: 41 Year
  Sex: Female
  Weight: 145.1 kg

DRUGS (9)
  1. ZYPREXA [Concomitant]
  2. SEROQUEL [Suspect]
     Indication: BIPOLAR DISORDER
     Dosage: ONE AT MORNING AND TWO AT NIGHT
     Route: 048
     Dates: start: 20050101
  3. RISTORIL [Concomitant]
     Dates: start: 20041109
  4. ABILIFY [Concomitant]
  5. DILTIAZEM [Concomitant]
     Dates: start: 20070428
  6. DOCUSATE SOD [Concomitant]
     Dates: start: 20070428
  7. METOCLOPRAM [Concomitant]
     Dates: start: 20070428
  8. CLONAZEPAM [Concomitant]
     Dates: start: 20041109
  9. PROMETHAZINE [Concomitant]
     Dosage: 12.5 MG TO 25 MG
     Dates: start: 20070404

REACTIONS (5)
  - TYPE 1 DIABETES MELLITUS [None]
  - PANCREATITIS [None]
  - TYPE 2 DIABETES MELLITUS [None]
  - WEIGHT INCREASED [None]
  - OBESITY [None]
